FAERS Safety Report 5079165-7 (Version None)
Quarter: 2006Q3

REPORT INFORMATION
  Report Type: 
  Country: None (occurrence: None)
  Receive Date: 20060814
  Receipt Date: 20060710
  Transmission Date: 20061208
  Serious: Yes (Hospitalization)
  Sender: FDA-Public Use
  Company Number: FR-GLAXOSMITHKLINE-B0430405A

PATIENT
  Age: 74 Year
  Sex: Male

DRUGS (10)
  1. AUGMENTIN [Suspect]
     Dosage: 3UNIT PER DAY
     Route: 050
     Dates: start: 20060531, end: 20060614
  2. CALCIPARINE [Suspect]
     Dosage: 1.4ML PER DAY
     Route: 058
     Dates: start: 20060529, end: 20060603
  3. ASPIRIN [Suspect]
     Dosage: 1UNIT PER DAY
     Route: 048
     Dates: end: 20060606
  4. OFLOCET [Suspect]
     Dosage: 400MG PER DAY
     Route: 048
     Dates: start: 20060531, end: 20060606
  5. ATORVASTATIN CALCIUM [Suspect]
     Dosage: 1UNIT PER DAY
     Route: 048
  6. PREVISCAN [Suspect]
     Dosage: 20MG PER DAY
     Route: 048
     Dates: end: 20060606
  7. TRIATEC [Concomitant]
     Route: 065
  8. CELIPROLOL [Concomitant]
     Route: 065
  9. RIVOTRIL [Concomitant]
     Route: 065
  10. LANTUS [Concomitant]
     Route: 065

REACTIONS (9)
  - ABDOMINAL HAEMATOMA [None]
  - ANAEMIA [None]
  - DRUG INTERACTION [None]
  - FEMORAL NERVE PALSY [None]
  - HAEMATOMA [None]
  - HYPOKINESIA [None]
  - INTERNATIONAL NORMALISED RATIO INCREASED [None]
  - OVERDOSE [None]
  - PARALYSIS [None]
